FAERS Safety Report 9252689 (Version 1)
Quarter: 2013Q2

REPORT INFORMATION
  Report Type: Spontaneous
  Country: CH (occurrence: CH)
  Receive Date: 20130424
  Receipt Date: 20130424
  Transmission Date: 20140414
  Serious: Yes (Hospitalization)
  Sender: FDA-Public Use
  Company Number: CH-GLAXOSMITHKLINE-B0886497A

PATIENT
  Age: 45 Year
  Sex: Female
  Weight: 67 kg

DRUGS (8)
  1. LAMICTAL [Suspect]
     Indication: EPILEPSY
     Dosage: 100MG TWICE PER DAY
     Route: 048
     Dates: start: 201104
  2. GILENYA [Suspect]
     Indication: MULTIPLE SCLEROSIS
     Dosage: .5MG PER DAY
     Route: 048
     Dates: start: 20130306, end: 20130321
  3. ORFIRIL LONG [Suspect]
     Indication: EPILEPSY
     Dosage: 300MG FIVE TIMES PER DAY
     Route: 048
     Dates: start: 201203
  4. SEROQUEL [Suspect]
     Indication: PRODUCT USED FOR UNKNOWN INDICATION
     Dosage: 25MG PER DAY
     Route: 048
     Dates: start: 201108
  5. CITALOPRAM HYDROBROMIDE [Suspect]
     Indication: PRODUCT USED FOR UNKNOWN INDICATION
     Dosage: 20MG PER DAY
     Route: 048
     Dates: start: 201204
  6. ESOMEPRAZOLE MAGNESIUM [Concomitant]
     Dosage: 40MG PER DAY
     Route: 048
     Dates: start: 2011
  7. TAMSULOSIN HYDROCHLORIDE [Concomitant]
     Indication: BLADDER DYSFUNCTION
     Dosage: .4MG PER DAY
     Route: 048
     Dates: start: 201206
  8. CALCIMAGON-D3 [Concomitant]
     Route: 048

REACTIONS (3)
  - Petit mal epilepsy [Recovered/Resolved]
  - Depressed level of consciousness [Recovering/Resolving]
  - Electroencephalogram abnormal [Recovered/Resolved]
